FAERS Safety Report 18223491 (Version 1)
Quarter: 2020Q3

REPORT INFORMATION
  Report Type: Spontaneous
  Country: IL (occurrence: IL)
  Receive Date: 20200902
  Receipt Date: 20200902
  Transmission Date: 20201103
  Serious: Yes (Hospitalization)
  Sender: FDA-Public Use
  Company Number: IL-EXELIXIS-CABO-20028369

PATIENT
  Age: 61 Year
  Sex: Male

DRUGS (5)
  1. CABOMETYX [Suspect]
     Active Substance: CABOZANTINIB S-MALATE
     Indication: RENAL CANCER METASTATIC
     Dosage: 60 MG, QD
     Dates: start: 20200218
  2. CABOMETYX [Suspect]
     Active Substance: CABOZANTINIB S-MALATE
     Dosage: 40 MG, QD
     Dates: end: 202006
  3. PREDNISONE. [Concomitant]
     Active Substance: PREDNISONE
  4. EVEROLIMUS. [Concomitant]
     Active Substance: EVEROLIMUS
  5. LENVATINIB [Suspect]
     Active Substance: LENVATINIB
     Indication: RENAL CANCER METASTATIC
     Dosage: 10 MG, QD
     Dates: start: 20200715

REACTIONS (4)
  - Palmar-plantar erythrodysaesthesia syndrome [Not Recovered/Not Resolved]
  - Wound necrosis [Unknown]
  - Malignant neoplasm progression [Unknown]
  - Herpes zoster [Unknown]

NARRATIVE: CASE EVENT DATE: 202002
